FAERS Safety Report 6088070-9 (Version None)
Quarter: 2009Q1

REPORT INFORMATION
  Report Type: 
  Country: None (occurrence: None)
  Receive Date: 20090218
  Receipt Date: 20090204
  Transmission Date: 20090719
  Serious: Yes (Life-Threatening)
  Sender: FDA-Public Use
  Company Number: 2009S1001996

PATIENT
  Age: 52 Year
  Sex: Female

DRUGS (10)
  1. ONDANSETRON [Suspect]
     Indication: ANTIEMETIC SUPPORTIVE CARE
     Dosage: 4 MG; DAILY; INTRAVENOUS
     Route: 042
     Dates: start: 20081231, end: 20081231
  2. ATRACURIUM BESYLATE [Suspect]
     Indication: MUSCLE RELAXANT THERAPY
     Dosage: 10 MG; DAILY; INTRAVENOUS
     Route: 042
     Dates: start: 20081231, end: 20081231
  3. DEXAMETHASONE [Suspect]
     Indication: ANTIEMETIC SUPPORTIVE CARE
     Dosage: 8 MG; DAILY; INTRAVENOUS
     Route: 042
     Dates: start: 20081231, end: 20081231
  4. FENTANYL (FENTANYL) (100 UG) [Suspect]
     Indication: ANALGESIA
     Dosage: 100 UG; DAILY; INTRAVENOUS
     Route: 042
     Dates: start: 20081231, end: 20081231
  5. PROPOFOL-LIPURO (PROPOFOL) (200 MG) [Suspect]
     Indication: ANAESTHESIA
     Dosage: 200 MG; DAILY; INTRAVENOUS
     Route: 042
     Dates: start: 20081231, end: 20081231
  6. DICLOFENAC (DICLOFENAC) (75 MG) [Suspect]
     Indication: ANALGESIA
     Dosage: 75 MG; DAILY; INTRAVENOUS
     Route: 042
     Dates: start: 20081231, end: 20081231
  7. MORPHINE (MORPHINE) (4 MG) [Suspect]
     Indication: ANALGESIA
     Dosage: 4 MG; DAILY; INTRAVENOUS
     Route: 042
     Dates: start: 20081231, end: 20081231
  8. ASPIRIN [Concomitant]
  9. DICLOFENAC [Concomitant]
  10. MORPHINE [Concomitant]

REACTIONS (3)
  - ANAPHYLACTIC SHOCK [None]
  - BRADYCARDIA [None]
  - ELECTROMECHANICAL DISSOCIATION [None]
